FAERS Safety Report 18157036 (Version 1)
Quarter: 2020Q3

REPORT INFORMATION
  Report Type: Spontaneous
  Country: US (occurrence: US)
  Receive Date: 20200817
  Receipt Date: 20200817
  Transmission Date: 20201103
  Serious: No
  Sender: FDA-Public Use
  Company Number: US-PFIZER INC-2020315207

PATIENT
  Age: 61 Year
  Sex: Female
  Weight: 70.75 kg

DRUGS (4)
  1. VITAMIN C [Concomitant]
     Active Substance: ASCORBIC ACID
     Dosage: UNK
  2. CALCIUM CARBONATE. [Concomitant]
     Active Substance: CALCIUM CARBONATE
     Dosage: UNK
  3. VITAMIN D3 [Concomitant]
     Active Substance: CHOLECALCIFEROL
     Dosage: UNK
  4. IBRANCE [Suspect]
     Active Substance: PALBOCICLIB
     Indication: BREAST CANCER FEMALE
     Dosage: 100 MG, CYCLIC (DAILY 21 DAYS EVERY 4 WEEKS)
     Route: 048
     Dates: start: 20200725

REACTIONS (5)
  - Nausea [Unknown]
  - Headache [Unknown]
  - Platelet count decreased [Unknown]
  - Seasonal allergy [Unknown]
  - Neutrophil count decreased [Unknown]
